FAERS Safety Report 7549369-X (Version None)
Quarter: 2011Q2

REPORT INFORMATION
  Report Type: 
  Country: None (occurrence: None)
  Receive Date: 20110615
  Receipt Date: 20040225
  Transmission Date: 20111010
  Serious: Yes (Hospitalization)
  Sender: FDA-Public Use
  Company Number: PHHO2003JP14942

PATIENT
  Sex: Female
  Weight: 66 kg

DRUGS (6)
  1. DIOVAN [Suspect]
     Indication: HYPERTENSION
     Route: 048
     Dates: start: 20030227, end: 20030901
  2. ASPIRIN [Suspect]
     Indication: ANGINA PECTORIS
     Route: 048
     Dates: start: 20030227, end: 20030901
  3. LIPITOR [Suspect]
     Indication: HYPERCHOLESTEROLAEMIA
     Route: 048
     Dates: start: 20030514, end: 20030901
  4. METFORMIN HCL [Suspect]
  5. METHYCOBAL [Suspect]
     Indication: DIABETES MELLITUS
     Route: 048
     Dates: start: 20000826, end: 20030901
  6. GLYBURIDE [Suspect]
     Indication: DIABETES MELLITUS
     Dosage: UNK
     Route: 048
     Dates: start: 20000216, end: 20030901

REACTIONS (4)
  - ACUTE MYOCARDIAL INFARCTION [None]
  - CORONARY ARTERY DISEASE [None]
  - CHEST PAIN [None]
  - ANGINA PECTORIS [None]
